FAERS Safety Report 7913526-0 (Version None)
Quarter: 2011Q4

REPORT INFORMATION
  Report Type: 
  Country: None (occurrence: None)
  Receive Date: 20111110
  Receipt Date: 20111104
  Transmission Date: 20120403
  Serious: Yes (Other)
  Sender: FDA-Public Use
  Company Number: DSA_47589_2011

PATIENT
  Sex: Female
  Weight: 62.1428 kg

DRUGS (4)
  1. XYZAL [Concomitant]
  2. ATARAX [Concomitant]
  3. ELIDEL [Suspect]
     Indication: DERMATITIS ATOPIC
     Dosage: 1 DF BID, TOPICAL
     Route: 061
     Dates: start: 20110801, end: 20110802
  4. PEPCID [Concomitant]

REACTIONS (5)
  - TENDERNESS [None]
  - PRURITUS [None]
  - INFLAMMATION [None]
  - SWELLING FACE [None]
  - BLISTER [None]
